FAERS Safety Report 6819964-1 (Version None)
Quarter: 2010Q3

REPORT INFORMATION
  Report Type: 
  Country: None (occurrence: None)
  Receive Date: 20100707
  Receipt Date: 20100701
  Transmission Date: 20110219
  Serious: Yes (Other)
  Sender: FDA-Public Use
  Company Number: US-GILEAD-2010-0027199

PATIENT
  Sex: Female

DRUGS (7)
  1. LETAIRIS [Suspect]
     Indication: PULMONARY ARTERIAL HYPERTENSION
     Route: 048
     Dates: start: 20091218, end: 20100615
  2. LEVOTHYROXINE SODIUM [Concomitant]
  3. TORSEMIDE [Concomitant]
  4. POTASSIUM CHLORIDE [Concomitant]
  5. OMEPRAZOLE [Concomitant]
  6. TEMAZEPAM [Concomitant]
  7. PROVENTIL [Concomitant]

REACTIONS (3)
  - ANAEMIA [None]
  - LIVER INJURY [None]
  - THROMBOCYTOPENIA [None]
